FAERS Safety Report 7323362-4 (Version None)
Quarter: 2011Q1

REPORT INFORMATION
  Report Type: 
  Country: None (occurrence: None)
  Receive Date: 20110301
  Receipt Date: 20110217
  Transmission Date: 20110831
  Serious: Yes (Hospitalization)
  Sender: FDA-Public Use
  Company Number: AU-ELI_LILLY_AND_COMPANY-AU201102004506

PATIENT
  Sex: Female

DRUGS (1)
  1. FORTEO [Suspect]
     Indication: OSTEOPOROSIS
     Dosage: 20 UG, DAILY (1/D)
     Dates: start: 20100621, end: 20110125

REACTIONS (7)
  - FALL [None]
  - PATELLA FRACTURE [None]
  - ECZEMA [None]
  - WEIGHT DECREASED [None]
  - WRIST FRACTURE [None]
  - HEAD INJURY [None]
  - POST PROCEDURAL COMPLICATION [None]
